FAERS Safety Report 7674184-6 (Version None)
Quarter: 2011Q3

REPORT INFORMATION
  Report Type: 
  Country: None (occurrence: None)
  Receive Date: 20110810
  Receipt Date: 20110801
  Transmission Date: 20111222
  Serious: Yes (Hospitalization, Other)
  Sender: FDA-Public Use
  Company Number: US-BAYER-2011-019560

PATIENT
  Age: 34 Year
  Sex: Female
  Weight: 79.365 kg

DRUGS (6)
  1. YAZ [Suspect]
  2. MINOCYCLINE HCL [Concomitant]
     Indication: ACNE
     Dosage: UNK
     Dates: start: 20080601
  3. ALBUTEROL SULFATE AUTOHALER [Concomitant]
     Indication: ASTHMA
     Dosage: UNK
     Dates: start: 20061101
  4. YAZ [Suspect]
     Indication: ACNE
     Dosage: UNK
     Route: 048
     Dates: start: 20071101, end: 20080301
  5. YAZ [Suspect]
     Indication: ORAL CONTRACEPTION
  6. SIMVASTATIN [Concomitant]
     Indication: BLOOD CHOLESTEROL INCREASED
     Dosage: UNK
     Dates: start: 20080701

REACTIONS (9)
  - ANXIETY [None]
  - INJURY [None]
  - PAIN [None]
  - MENTAL DISORDER [None]
  - DEPRESSION [None]
  - EMOTIONAL DISTRESS [None]
  - PULMONARY EMBOLISM [None]
  - PULMONARY INFARCTION [None]
  - PLEURAL EFFUSION [None]
